FAERS Safety Report 4897498-1 (Version None)
Quarter: 2006Q1

REPORT INFORMATION
  Report Type: 
  Country: None (occurrence: None)
  Receive Date: 20060130
  Receipt Date: 20060130
  Transmission Date: 20060701
  Serious: Yes (Hospitalization)
  Sender: FDA-Public Use
  Company Number: None

PATIENT
  Sex: Female
  Weight: 56.6996 kg

DRUGS (5)
  1. IRINOTECAN HCL [Suspect]
     Indication: RECURRENT CANCER
     Dosage: 65 MG/M2 WKLY X 4 (2 WKS OFF)
     Dates: start: 20040816
  2. IRINOTECAN HCL [Suspect]
     Indication: RECURRENT CANCER
     Dosage: 65 MG/M2 WKLY X 4 (2 WKS OFF)
     Dates: start: 20040823
  3. CISPLATIN [Suspect]
     Indication: RECURRENT CANCER
     Dosage: 30 MG/M2 WKLY X 4 (2 WKS OFF)
     Dates: start: 20040816, end: 20040823
  4. KYTRIL [Concomitant]
  5. DECADRON [Concomitant]

REACTIONS (3)
  - DEVICE OCCLUSION [None]
  - NAUSEA [None]
  - VOMITING [None]
